FAERS Safety Report 8220001-5 (Version None)
Quarter: 2012Q1

REPORT INFORMATION
  Report Type: 
  Country: None (occurrence: None)
  Receive Date: 20120301
  Receipt Date: 20110923
  Transmission Date: 20120608
  Serious: Yes (Hospitalization, Other)
  Sender: FDA-Public Use
  Company Number: 297574USA

PATIENT
  Sex: Female
  Weight: 42.6381 kg

DRUGS (3)
  1. CLONAZEPAM [Suspect]
     Dosage: (2 MG), ORAL
     Route: 048
  2. BACK MEDICINE (NOS) [Concomitant]
  3. MIRTAZAPINE [Suspect]
     Dosage: (30 MG), ORAL
     Route: 048

REACTIONS (5)
  - DEPRESSION [None]
  - PANIC ATTACK [None]
  - AMNESIA [None]
  - ABDOMINAL PAIN UPPER [None]
  - WITHDRAWAL SYNDROME [None]
